FAERS Safety Report 5242717-5 (Version None)
Quarter: 2007Q1

REPORT INFORMATION
  Report Type: 
  Country: None (occurrence: None)
  Receive Date: 20070221
  Receipt Date: 20070219
  Transmission Date: 20070707
  Serious: Yes (Other)
  Sender: FDA-Public Use
  Company Number: US-GLAXOSMITHKLINE-A0640105A

PATIENT
  Age: 63 Year
  Sex: Female

DRUGS (18)
  1. IMITREX [Suspect]
     Indication: MIGRAINE
     Dosage: 25MG AS REQUIRED
     Route: 048
  2. IMITREX [Suspect]
     Dosage: 1INJ AS REQUIRED
     Route: 058
     Dates: start: 19950401
  3. ESTRACE [Concomitant]
  4. TYLENOL [Concomitant]
  5. EXCEDRIN (MIGRAINE) [Concomitant]
  6. ACIPHEX [Concomitant]
  7. TOPAMAX [Concomitant]
  8. ASPIRIN [Concomitant]
  9. GLUCOSAMINE [Concomitant]
  10. MOBIC [Concomitant]
  11. GLUTAMINE [Concomitant]
  12. LECITHIN [Concomitant]
  13. PARSLEY [Concomitant]
  14. MULTI-VITAMIN [Concomitant]
  15. NORTRIPTYLINE HCL [Concomitant]
  16. LOMOTIL [Concomitant]
  17. EPIPEN [Concomitant]
  18. CYMBALTA [Concomitant]

REACTIONS (14)
  - BURNING SENSATION [None]
  - CARDIAC FLUTTER [None]
  - DRUG INEFFECTIVE [None]
  - INJECTION SITE BRUISING [None]
  - INJECTION SITE IRRITATION [None]
  - INJECTION SITE OEDEMA [None]
  - INJECTION SITE PAIN [None]
  - LOSS OF CONSCIOUSNESS [None]
  - MIGRAINE [None]
  - MOVEMENT DISORDER [None]
  - PHARMACEUTICAL PRODUCT COMPLAINT [None]
  - SENSATION OF HEAVINESS [None]
  - SOMNOLENCE [None]
  - URTICARIA [None]
